FAERS Safety Report 9586421 (Version 4)
Quarter: 2014Q2

REPORT INFORMATION
  Report Type: Spontaneous
  Country: US (occurrence: US)
  Receive Date: 20131003
  Receipt Date: 20140620
  Transmission Date: 20141212
  Serious: Yes (Hospitalization)
  Sender: FDA-Public Use
  Company Number: US-BAYER-2013-119164

PATIENT
  Age: 24 Year
  Sex: Female
  Weight: 48.07 kg

DRUGS (3)
  1. MIRENA [Suspect]
     Indication: CONTRACEPTION
     Dosage: 20 MCG/24HR, CONT
     Route: 015
     Dates: start: 200909, end: 20101025
  2. ROCEPHIN [Concomitant]
  3. FLAGYL [Concomitant]

REACTIONS (7)
  - Uterine perforation [None]
  - Appendicectomy [None]
  - Injury [None]
  - Abdominal pain [None]
  - Off label use [None]
  - Device issue [None]
  - Emotional distress [None]
